FAERS Safety Report 24447116 (Version 4)
Quarter: 2024Q4

REPORT INFORMATION
  Report Type: Spontaneous
  Country: US (occurrence: US)
  Receive Date: 20241016
  Receipt Date: 20241230
  Transmission Date: 20250115
  Serious: Yes (Hospitalization)
  Sender: RIGEL PHARMACEUTICALS
  Company Number: US-Rigel Pharmaceuticals, Inc.-20241000084

PATIENT
  Sex: Female

DRUGS (1)
  1. GAVRETO [Suspect]
     Active Substance: PRALSETINIB
     Indication: Lung neoplasm malignant
     Dosage: 400 MG, QD
     Route: 048
     Dates: start: 20240727, end: 20240820

REACTIONS (3)
  - Hospitalisation [Unknown]
  - Nephrostomy [Unknown]
  - Urinary tract obstruction [Unknown]

NARRATIVE: CASE EVENT DATE: 20240101
